FAERS Safety Report 25869063 (Version 1)
Quarter: 2025Q4

REPORT INFORMATION
  Report Type: Report from Study
  Country: CA (occurrence: CA)
  Receive Date: 20251001
  Receipt Date: 20251001
  Transmission Date: 20260118
  Serious: Yes (Hospitalization)
  Sender: TAKEDA
  Company Number: CA-TAKEDA-2025TUS084381

PATIENT
  Age: 67 Year
  Sex: Male

DRUGS (3)
  1. VEDOLIZUMAB [Suspect]
     Active Substance: VEDOLIZUMAB
     Indication: Colitis ulcerative
     Dosage: 300 MILLIGRAM
  2. Cortiment [Concomitant]
     Dosage: 9 MILLIGRAM
  3. BUTYLSCOPOLAMINE BROMIDE [Concomitant]
     Active Substance: BUTYLSCOPOLAMINE BROMIDE
     Dosage: 50 MILLIGRAM

REACTIONS (2)
  - Vascular injury [Not Recovered/Not Resolved]
  - Radiation injury [Not Recovered/Not Resolved]
